FAERS Safety Report 10548407 (Version 2)
Quarter: 2014Q4

REPORT INFORMATION
  Report Type: Spontaneous
  Country: US (occurrence: US)
  Receive Date: 20141028
  Receipt Date: 20141217
  Transmission Date: 20150529
  Serious: No
  Sender: FDA-Public Use
  Company Number: US-ELI_LILLY_AND_COMPANY-US201410004748

PATIENT
  Age: 63 Year
  Sex: Male
  Weight: 89.8 kg

DRUGS (1)
  1. HUMALOG [Suspect]
     Active Substance: INSULIN LISPRO
     Indication: PRODUCT USED FOR UNKNOWN INDICATION
     Dosage: UNK
     Route: 058

REACTIONS (7)
  - Infusion site scar [Unknown]
  - Vomiting [Unknown]
  - Chest discomfort [Unknown]
  - Infusion site discolouration [Unknown]
  - Malabsorption from injection site [Unknown]
  - Blood glucose increased [Unknown]
  - Infusion site erythema [Unknown]

NARRATIVE: CASE EVENT DATE: 201409
